FAERS Safety Report 25774496 (Version 2)
Quarter: 2025Q3

REPORT INFORMATION
  Report Type: Report from Study
  Country: US (occurrence: US)
  Receive Date: 20250908
  Receipt Date: 20250922
  Transmission Date: 20251020
  Serious: No
  Sender: SUNOVION
  Company Number: US-SUMITOMO PHARMA SWITZERLAND GMBH-2025SPA009603

PATIENT
  Age: 65 Year
  Sex: Male

DRUGS (16)
  1. ORGOVYX [Suspect]
     Active Substance: RELUGOLIX
     Indication: Prostate cancer
     Route: 048
  2. AMLODIPINE [Concomitant]
     Active Substance: AMLODIPINE BESYLATE
  3. ASPIRIN [Concomitant]
     Active Substance: ASPIRIN
  4. VITAMIN B12 [Concomitant]
     Active Substance: CYANOCOBALAMIN
  5. FERROUS SULFATE [Concomitant]
     Active Substance: FERROUS SULFATE
  6. GLIPIZIDE [Concomitant]
     Active Substance: GLIPIZIDE
  7. HYDROCHLOROTHIAZIDE [Concomitant]
     Active Substance: HYDROCHLOROTHIAZIDE
  8. LEVOTHYROXINE [Concomitant]
     Active Substance: LEVOTHYROXINE
  9. LOSARTAN [Concomitant]
     Active Substance: LOSARTAN
  10. METFORMIN [Concomitant]
     Active Substance: METFORMIN HYDROCHLORIDE
  11. NABUMETONE [Concomitant]
     Active Substance: NABUMETONE
  12. OXYBUTYNIN [Concomitant]
     Active Substance: OXYBUTYNIN
  13. SIMVASTATIN [Concomitant]
     Active Substance: SIMVASTATIN
  14. SILDENAFIL [Concomitant]
     Active Substance: SILDENAFIL
  15. TADALAFIL [Concomitant]
     Active Substance: TADALAFIL
  16. LUPRON [Concomitant]
     Active Substance: LEUPROLIDE ACETATE

REACTIONS (5)
  - Burning sensation [Unknown]
  - Abdominal discomfort [Unknown]
  - Nausea [Unknown]
  - Hot flush [Unknown]
  - Incorrect dose administered [Recovered/Resolved]
